FAERS Safety Report 12967122 (Version 1)
Quarter: 2016Q4

REPORT INFORMATION
  Report Type: Spontaneous
  Country: JP (occurrence: JP)
  Receive Date: 20161123
  Receipt Date: 20161123
  Transmission Date: 20170207
  Serious: Yes (Hospitalization)
  Sender: FDA-Public Use
  Company Number: JP-ROCHE-1854091

PATIENT
  Age: 73 Year
  Sex: Female
  Weight: 60 kg

DRUGS (9)
  1. FERROMIA [Concomitant]
     Active Substance: FERROUS CITRATE
     Route: 048
     Dates: start: 20160719
  2. XELODA [Suspect]
     Active Substance: CAPECITABINE
     Indication: COLON CANCER
     Dosage: DOSAGE IS UNCERTAIN.
     Route: 048
     Dates: start: 20160802, end: 20161007
  3. ELPLAT [Concomitant]
     Active Substance: OXALIPLATIN
     Dosage: SINGLE DOSE ADMINISTRATION
     Route: 041
     Dates: start: 20160823, end: 20160823
  4. ELPLAT [Concomitant]
     Active Substance: OXALIPLATIN
     Dosage: SINGLE DOSE ADMINISTRATION
     Route: 041
     Dates: start: 20160913, end: 20160913
  5. PYDOXAL [Concomitant]
     Active Substance: PYRIDOXAL
     Indication: PROPHYLAXIS
     Route: 048
     Dates: start: 20160802
  6. DECADRON [Concomitant]
     Active Substance: DEXAMETHASONE
     Indication: PROPHYLAXIS
     Route: 048
     Dates: start: 20160913
  7. ELPLAT [Concomitant]
     Active Substance: OXALIPLATIN
     Indication: COLON CANCER
     Dosage: SINGLE DOSE ADMINISTRATION
     Route: 041
     Dates: start: 20160802, end: 20160802
  8. ELPLAT [Concomitant]
     Active Substance: OXALIPLATIN
     Dosage: SINGLE DOSE ADMINISTRATION
     Route: 041
     Dates: start: 20161004, end: 20161004
  9. TERPERAN [Concomitant]
     Active Substance: METOCLOPRAMIDE HYDROCHLORIDE
     Indication: PROPHYLAXIS
     Route: 048
     Dates: start: 20160802

REACTIONS (1)
  - Enterocolitis [Recovering/Resolving]

NARRATIVE: CASE EVENT DATE: 20161018
